FAERS Safety Report 4399714-1 (Version None)
Quarter: 2004Q2

REPORT INFORMATION
  Report Type: 
  Country: None (occurrence: None)
  Receive Date: 20040608
  Receipt Date: 20040419
  Transmission Date: 20050107
  Serious: No
  Sender: FDA-Public Use
  Company Number: FROV000189

PATIENT
  Age: 54 Year
  Sex: Male

DRUGS (1)
  1. FROVA [Suspect]
     Indication: HEADACHE
     Dosage: 2.5 MG; ORAL
     Route: 048
     Dates: start: 20040419

REACTIONS (1)
  - HEADACHE [None]
